FAERS Safety Report 6569886-9 (Version None)
Quarter: 2010Q1

REPORT INFORMATION
  Report Type: 
  Country: None (occurrence: None)
  Receive Date: 20100204
  Receipt Date: 20100121
  Transmission Date: 20100710
  Serious: Yes (Other)
  Sender: FDA-Public Use
  Company Number: PHEH2010US01458

PATIENT
  Sex: Female

DRUGS (8)
  1. RECLAST [Suspect]
     Dosage: UNK
     Dates: start: 20100120
  2. ALDACTONE [Concomitant]
     Dosage: 25 MG, UNK
  3. PLAQUENIL [Concomitant]
     Dosage: 200 MG, UNK
  4. CARDIZEM CD [Concomitant]
     Dosage: 360 MG, UNK
  5. NEXIUM [Concomitant]
     Dosage: 40 MG, UNK
  6. VITAMIN C [Concomitant]
     Dosage: 500 MG, UNK
  7. CALCIUM [Concomitant]
     Dosage: 1200, UNK
  8. VITAMIN D [Concomitant]
     Dosage: 800 IU, UNK

REACTIONS (8)
  - ABASIA [None]
  - ASTHENIA [None]
  - EPISTAXIS [None]
  - FATIGUE [None]
  - INFLUENZA LIKE ILLNESS [None]
  - MALAISE [None]
  - NASAL CONGESTION [None]
  - NAUSEA [None]
